FAERS Safety Report 25826333 (Version 1)
Quarter: 2025Q3

REPORT INFORMATION
  Report Type: Report from Study
  Country: US (occurrence: US)
  Receive Date: 20250920
  Receipt Date: 20250920
  Transmission Date: 20251021
  Serious: Yes (Other)
  Sender: ABBVIE
  Company Number: US-ABBVIE-6468131

PATIENT
  Age: 73 Year
  Sex: Female

DRUGS (2)
  1. SYNTHROID [Suspect]
     Active Substance: LEVOTHYROXINE SODIUM
     Indication: Product used for unknown indication
     Dosage: ON EMPTY STOMACH?QTY90 DS90 NDC 00074-6624-90
     Route: 048
     Dates: start: 202406
  2. CALCIUM CARBONATE [Concomitant]
     Active Substance: CALCIUM CARBONATE
     Indication: Product used for unknown indication

REACTIONS (6)
  - Thyroid mass [Unknown]
  - Cardiomegaly [Unknown]
  - Fall [Unknown]
  - Wrist fracture [Unknown]
  - Hypertrophic cardiomyopathy [Unknown]
  - Hysterectomy [Unknown]

NARRATIVE: CASE EVENT DATE: 20250130
